FAERS Safety Report 7436144-X (Version None)
Quarter: 2011Q2

REPORT INFORMATION
  Report Type: 
  Country: None (occurrence: None)
  Receive Date: 20110425
  Receipt Date: 20110411
  Transmission Date: 20111010
  Serious: Yes (Other)
  Sender: FDA-Public Use
  Company Number: US-BAYER-2011-032403

PATIENT
  Age: 89 Year
  Sex: Female
  Weight: 61 kg

DRUGS (8)
  1. BAYER CHEWABLE LOW DOSE BABY ASPIRIN TABLET CHERRY [Suspect]
     Dosage: 325 MG, QD
     Route: 048
     Dates: start: 20071101, end: 20090401
  2. COZAAR [Concomitant]
  3. TIMOLOL [Concomitant]
  4. ATENOLOL [Concomitant]
  5. TRAVATAN [Concomitant]
  6. BAYER CHEWABLE LOW DOSE BABY ASPIRIN TABLET CHERRY [Suspect]
     Indication: ISCHAEMIC HEART DISEASE PROPHYLAXIS
     Dosage: 162 MG, QD
     Route: 048
     Dates: start: 20090401
  7. HYDROCHLOROTHIAZIDE [Concomitant]
  8. SPIRONOLACTONE [Concomitant]

REACTIONS (1)
  - DEAFNESS [None]
